FAERS Safety Report 23736569 (Version 3)
Quarter: 2024Q4

REPORT INFORMATION
  Report Type: Spontaneous
  Country: PL (occurrence: PL)
  Receive Date: 20240412
  Receipt Date: 20241125
  Transmission Date: 20250114
  Serious: Yes (Death, Hospitalization, Other)
  Sender: MYLAN
  Company Number: PL-Orion Corporation ORION PHARMA-SOLO2024-0008

PATIENT
  Age: 30 Year
  Sex: Male

DRUGS (27)
  1. MONTELUKAST [Suspect]
     Active Substance: MONTELUKAST
     Indication: Graft versus host disease
     Dosage: UNK
     Route: 065
  2. MONTELUKAST [Suspect]
     Active Substance: MONTELUKAST
     Indication: Lung disorder
  3. AZITHROMYCIN [Suspect]
     Active Substance: AZITHROMYCIN
     Indication: Graft versus host disease
     Dosage: UNK
     Route: 065
  4. AZITHROMYCIN [Suspect]
     Active Substance: AZITHROMYCIN
     Dosage: UNK
     Route: 065
  5. METOPROLOL [Suspect]
     Active Substance: METOPROLOL
     Indication: Product used for unknown indication
     Dosage: 23.75 MILLIGRAM, BID (23.75 MG 2X1TAB)
     Route: 065
  6. CANDESARTAN [Suspect]
     Active Substance: CANDESARTAN
     Indication: Product used for unknown indication
     Dosage: 800 MILLIGRAM (800 MG (1/2 TAB))
     Route: 065
  7. CANDESARTAN [Suspect]
     Active Substance: CANDESARTAN
     Dosage: 8 MILLIGRAM (8 MG (1/2 TAB))
     Route: 065
  8. CYCLOSPORINE [Suspect]
     Active Substance: CYCLOSPORINE
     Indication: Prophylaxis against graft versus host disease
     Dosage: SHORT COURSE
     Route: 065
  9. CYCLOSPORINE [Suspect]
     Active Substance: CYCLOSPORINE
     Indication: Chronic graft versus host disease
  10. TACROLIMUS [Suspect]
     Active Substance: TACROLIMUS
     Indication: Chronic graft versus host disease
     Dosage: UNK
     Route: 065
  11. MYCOPHENOLATE MOFETIL [Suspect]
     Active Substance: MYCOPHENOLATE MOFETIL
     Indication: Chronic graft versus host disease
     Dosage: UNK
     Route: 065
  12. METHYLPREDNISOLONE [Suspect]
     Active Substance: METHYLPREDNISOLONE
     Indication: Graft versus host disease
     Dosage: UNK
     Route: 048
  13. METHYLPREDNISOLONE [Suspect]
     Active Substance: METHYLPREDNISOLONE
     Indication: Chronic graft versus host disease
  14. METHOTREXATE [Suspect]
     Active Substance: METHOTREXATE
     Indication: Prophylaxis against graft versus host disease
     Dosage: ANOTHER ATTEMPT
     Route: 065
  15. METHOTREXATE [Suspect]
     Active Substance: METHOTREXATE
     Indication: Chronic graft versus host disease
     Dosage: UNK
     Route: 065
  16. METHOTREXATE [Suspect]
     Active Substance: METHOTREXATE
     Dosage: SHORT COURSE
     Route: 065
  17. FLUTICASONE [Suspect]
     Active Substance: FLUTICASONE
     Indication: Graft versus host disease
     Dosage: UNK
     Route: 065
  18. FLUTICASONE [Suspect]
     Active Substance: FLUTICASONE
     Indication: Chronic graft versus host disease
  19. DEXAMETHASONE [Suspect]
     Active Substance: DEXAMETHASONE
     Indication: Chronic graft versus host disease
     Dosage: UNK
     Route: 065
  20. MOMETASONE FUROATE [Suspect]
     Active Substance: MOMETASONE FUROATE
     Indication: Chronic graft versus host disease
     Dosage: UNK
     Route: 065
  21. RUXOLITINIB [Suspect]
     Active Substance: RUXOLITINIB
     Indication: Chronic graft versus host disease
     Dosage: UNK
     Route: 048
  22. SIROLIMUS [Suspect]
     Active Substance: SIROLIMUS
     Indication: Chronic graft versus host disease
     Dosage: UNK
     Route: 065
  23. FLUDARABINE [Suspect]
     Active Substance: FLUDARABINE PHOSPHATE
     Indication: Chronic graft versus host disease
     Dosage: CONDITIONING
     Route: 065
  24. MELPHALAN [Suspect]
     Active Substance: MELPHALAN
     Indication: Chronic graft versus host disease
     Dosage: CONDITIONING
     Route: 065
  25. TORSEMIDE [Suspect]
     Active Substance: TORSEMIDE
     Indication: Product used for unknown indication
     Dosage: 1 MILLIGRAM, QD (2X1 TAB) (1 TAB IN MORNING)
     Route: 065
  26. TORSEMIDE [Suspect]
     Active Substance: TORSEMIDE
     Dosage: 100 MILLIGRAM (100 MG (2X1 TAB))
     Route: 065
  27. SACUBITRIL\VALSARTAN [Suspect]
     Active Substance: SACUBITRIL\VALSARTAN
     Indication: Product used for unknown indication
     Dosage: UNK (24/26MG 2X1TAB)
     Route: 065

REACTIONS (21)
  - Lichenoid keratosis [Fatal]
  - Weight decreased [Fatal]
  - Pneumonia [Fatal]
  - Erythema [Fatal]
  - General physical health deterioration [Fatal]
  - Dyspnoea [Fatal]
  - Chronic graft versus host disease [Fatal]
  - Pleural effusion [Fatal]
  - Disease progression [Fatal]
  - Mastication disorder [Fatal]
  - Drug resistance [Fatal]
  - Disease recurrence [Fatal]
  - Graft versus host disease [Not Recovered/Not Resolved]
  - Therapeutic product effect incomplete [Unknown]
  - Exercise tolerance decreased [Unknown]
  - Cough [Unknown]
  - Ejection fraction abnormal [Unknown]
  - Heart rate increased [Unknown]
  - Pulmonary congestion [Unknown]
  - Product use in unapproved indication [Unknown]
  - Drug ineffective for unapproved indication [Unknown]
